FAERS Safety Report 18929648 (Version 1)
Quarter: 2021Q1

REPORT INFORMATION
  Report Type: Spontaneous
  Country: US (occurrence: US)
  Receive Date: 20210223
  Receipt Date: 20210223
  Transmission Date: 20210420
  Serious: Yes (Other)
  Sender: FDA-Public Use
  Company Number: US-MYLANLABS-2021M1009899

PATIENT
  Age: 70 Year
  Sex: Female

DRUGS (1)
  1. ISOSULFAN BLUE. [Suspect]
     Active Substance: ISOSULFAN BLUE
     Indication: PRODUCT USED FOR UNKNOWN INDICATION
     Dosage: UNK

REACTIONS (1)
  - Anaphylactic reaction [Unknown]
